FAERS Safety Report 6882786-X (Version None)
Quarter: 2010Q3

REPORT INFORMATION
  Report Type: 
  Country: None (occurrence: None)
  Receive Date: 20100729
  Receipt Date: 20100709
  Transmission Date: 20110219
  Serious: No
  Sender: FDA-Public Use
  Company Number: US-B.I. PHARMACEUTICALS,INC./RIDGEFIELD-2010-BP-08028BP

PATIENT
  Sex: Female

DRUGS (14)
  1. COMBIVENT [Suspect]
     Indication: CHRONIC OBSTRUCTIVE PULMONARY DISEASE
     Dosage: 12 PUF
     Route: 055
     Dates: start: 20040101
  2. BUTALBITAL ACETAMINOPHEN AND CAFFEINE [Concomitant]
     Indication: HEADACHE
     Route: 048
  3. CYMBALTA [Concomitant]
     Indication: DEPRESSION
     Route: 048
  4. PRILOSEC [Concomitant]
     Indication: GASTROOESOPHAGEAL REFLUX DISEASE
     Route: 048
  5. VALIUM [Concomitant]
     Indication: NERVOUSNESS
     Route: 048
  6. PERCOCET [Concomitant]
     Indication: MUSCULOSKELETAL DISCOMFORT
     Route: 048
  7. MACRODANTIN [Concomitant]
     Indication: URINARY TRACT INFECTION
     Route: 048
  8. SEROQUEL [Concomitant]
     Indication: DEPRESSION
     Route: 048
  9. TRAZODONE [Concomitant]
     Indication: INSOMNIA
     Route: 048
  10. PREMARIN [Concomitant]
     Indication: MENOPAUSE
     Route: 048
  11. MIRAPEX [Concomitant]
     Indication: RESTLESS LEGS SYNDROME
     Route: 048
  12. MUCINEX [Concomitant]
     Indication: SINUS DISORDER
     Route: 048
  13. ATROVENT [Concomitant]
     Indication: CHRONIC OBSTRUCTIVE PULMONARY DISEASE
     Route: 055
     Dates: start: 20100706
  14. ADVAIR DISKUS 100/50 [Concomitant]
     Indication: CHRONIC OBSTRUCTIVE PULMONARY DISEASE
     Route: 055

REACTIONS (3)
  - CHOKING [None]
  - COUGH [None]
  - RETCHING [None]
